FAERS Safety Report 5113290-7 (Version None)
Quarter: 2006Q3

REPORT INFORMATION
  Report Type: 
  Country: None (occurrence: None)
  Receive Date: 20060920
  Receipt Date: 20060829
  Transmission Date: 20061208
  Serious: Yes (Other)
  Sender: FDA-Public Use
  Company Number: US200608006387

PATIENT
  Age: 72 Year
  Sex: Female

DRUGS (7)
  1. EVISTA [Suspect]
     Indication: OSTEOPENIA
     Dosage: 60 MG, ORAL
     Route: 048
     Dates: start: 20040101
  2. FORTEO [Suspect]
     Indication: OSTEOPOROSIS
     Dates: start: 20060823
  3. FORTEO PEN (FORTEO PEN) PEN, DISPOSABLE [Concomitant]
  4. VICON FORTE (FOLIC ACID, MINERALS NOS, VITAMINS NOS) [Concomitant]
  5. COZAAR [Concomitant]
  6. MAGNESIUM SULFATE [Concomitant]
  7. ULTRACET [Concomitant]

REACTIONS (7)
  - DRUG INEFFECTIVE [None]
  - FALL [None]
  - FLATULENCE [None]
  - IMPAIRED HEALING [None]
  - OSTEOPOROSIS [None]
  - PHARMACEUTICAL PRODUCT COMPLAINT [None]
  - WRIST FRACTURE [None]
